FAERS Safety Report 8848244 (Version 2)
Quarter: 2015Q3

REPORT INFORMATION
  Report Type: Report from Study
  Country: US (occurrence: US)
  Receive Date: 20121018
  Receipt Date: 20150806
  Transmission Date: 20151125
  Serious: Yes (Hospitalization)
  Sender: FDA-Public Use
  Company Number: US-ROCHE-1125491

PATIENT
  Sex: Female
  Weight: 33.1 kg

DRUGS (4)
  1. NUTROPIN [Suspect]
     Active Substance: SOMATROPIN
     Route: 058
     Dates: start: 20000811, end: 20010627
  2. NUTROPIN [Suspect]
     Active Substance: SOMATROPIN
     Route: 058
  3. NUTROPIN [Suspect]
     Active Substance: SOMATROPIN
     Indication: GROWTH HORMONE DEFICIENCY
     Route: 058
     Dates: start: 19981211, end: 199906
  4. NUTROPIN [Suspect]
     Active Substance: SOMATROPIN
     Route: 058

REACTIONS (3)
  - Lymphoproliferative disorder [Unknown]
  - Complications of transplant surgery [Unknown]
  - Liver transplant rejection [Unknown]
